FAERS Safety Report 10701861 (Version 2)
Quarter: 2015Q1

REPORT INFORMATION
  Report Type: Spontaneous
  Country: US (occurrence: US)
  Receive Date: 20150109
  Receipt Date: 20150115
  Transmission Date: 20150721
  Serious: No
  Sender: FDA-Public Use
  Company Number: US-GLAXOSMITHKLINE-US2014GSK045823

PATIENT
  Age: 61 Year
  Sex: Female
  Weight: 47 kg

DRUGS (10)
  1. VOTRIENT [Suspect]
     Active Substance: PAZOPANIB HYDROCHLORIDE
     Dosage: UNK, U
  2. COZAAR [Concomitant]
     Active Substance: LOSARTAN POTASSIUM
  3. NORVASC [Concomitant]
     Active Substance: AMLODIPINE BESYLATE
  4. VOTRIENT [Suspect]
     Active Substance: PAZOPANIB HYDROCHLORIDE
     Dosage: UNK, U
  5. L-THYROXINE [Concomitant]
     Active Substance: LEVOTHYROXINE
  6. COMPAZINE [Concomitant]
     Active Substance: PROCHLORPERAZINE MALEATE
  7. VITAMIN D [Concomitant]
     Active Substance: CHOLECALCIFEROL
  8. VOTRIENT [Suspect]
     Active Substance: PAZOPANIB HYDROCHLORIDE
     Indication: RENAL CELL CARCINOMA
     Dosage: 800 MG, QD
     Dates: start: 20141011, end: 20141031
  9. SIMVASTATIN. [Concomitant]
     Active Substance: SIMVASTATIN
  10. ATIVAN [Concomitant]
     Active Substance: LORAZEPAM

REACTIONS (4)
  - Skin warm [Recovering/Resolving]
  - Rash erythematous [Recovering/Resolving]
  - Rash pruritic [Recovering/Resolving]
  - Rash generalised [Not Recovered/Not Resolved]

NARRATIVE: CASE EVENT DATE: 201410
